FAERS Safety Report 6591295-7 (Version None)
Quarter: 2010Q1

REPORT INFORMATION
  Report Type: 
  Country: None (occurrence: None)
  Receive Date: 20100219
  Receipt Date: 20100209
  Transmission Date: 20100710
  Serious: Yes (Other)
  Sender: FDA-Public Use
  Company Number: US-PFIZER INC-2010017807

PATIENT

DRUGS (1)
  1. GEODON [Suspect]

REACTIONS (2)
  - PAIN IN JAW [None]
  - SWOLLEN TONGUE [None]
